FAERS Safety Report 7555415-X (Version None)
Quarter: 2011Q2

REPORT INFORMATION
  Report Type: 
  Country: None (occurrence: None)
  Receive Date: 20110617
  Receipt Date: 20110602
  Transmission Date: 20111010
  Serious: No
  Sender: FDA-Public Use
  Company Number: US-B.I. PHARMACEUTICALS,INC./RIDGEFIELD-2011-BP-08443BP

PATIENT
  Sex: Male
  Weight: 67.13 kg

DRUGS (22)
  1. LEVOTHROID [Concomitant]
     Indication: THYROID DISORDER
  2. A SUPPLEMENT FOR PROSTATE HEALTH [Concomitant]
     Indication: SUPPLEMENTATION THERAPY
  3. LEVOTHYROXINE SODIUM [Concomitant]
  4. PRADAXA [Suspect]
     Indication: ATRIAL FIBRILLATION
     Dosage: 300 MG
     Route: 048
     Dates: start: 20110303
  5. METOPROLOL TARTRATE [Concomitant]
  6. COENZYME Q10 [Concomitant]
     Indication: SUPPLEMENTATION THERAPY
  7. VALACYCLOVIR [Concomitant]
  8. SIMVASTATIN [Concomitant]
     Indication: BLOOD CHOLESTEROL INCREASED
  9. CLINDAMYCIN [Concomitant]
     Indication: DENTAL CARE
  10. PRADAXA [Suspect]
     Indication: CARDIAC FAILURE CONGESTIVE
  11. POTASSIUM [Concomitant]
     Indication: PROPHYLAXIS
  12. DOXAZOSIN MESYLATE [Concomitant]
  13. FERROUS SULFATE TAB [Concomitant]
     Indication: ANAEMIA
  14. CALCIUM CARBONATE [Concomitant]
     Indication: SUPPLEMENTATION THERAPY
  15. LASIX [Concomitant]
     Indication: CARDIAC FAILURE CONGESTIVE
  16. FINASTERIDE [Concomitant]
     Indication: PROSTATOMEGALY
  17. LOSARTAN POTASSIUM [Concomitant]
  18. KRILL OIL [Concomitant]
     Indication: SUPPLEMENTATION THERAPY
  19. CARAC [Concomitant]
     Indication: PRECANCEROUS SKIN LESION
     Route: 061
     Dates: start: 20110201, end: 20110310
  20. GRAPE SEED EXTRACT [Concomitant]
     Indication: SUPPLEMENTATION THERAPY
  21. AMIODARONE HCL [Concomitant]
  22. FUROSEMIDE [Concomitant]

REACTIONS (4)
  - PULMONARY CONGESTION [None]
  - COUGH [None]
  - EYE DISCHARGE [None]
  - ERYTHEMA [None]
